FAERS Safety Report 5469256-0 (Version None)
Quarter: 2007Q3

REPORT INFORMATION
  Report Type: 
  Country: None (occurrence: None)
  Receive Date: 20070924
  Receipt Date: 20070906
  Transmission Date: 20080115
  Serious: Yes (Other)
  Sender: FDA-Public Use
  Company Number: 100#03#2007-03504

PATIENT
  Age: 67 Year
  Sex: Male

DRUGS (7)
  1. CIPROFLOXACIN [Suspect]
     Indication: BRONCHITIS
     Dosage: 1000 MG ORAL
     Route: 048
  2. CIPROFLOXACIN [Suspect]
     Indication: CHRONIC OBSTRUCTIVE PULMONARY DISEASE
     Dosage: 1000 MG ORAL
     Route: 048
  3. ACETYLSALICYLIC ACID [Concomitant]
  4. LIPITOR [Concomitant]
  5. SERETIDE                 (SERETIDE MITE)            (FLUTICASONE, SALM [Concomitant]
  6. SPIRIVA [Concomitant]
  7. ZANTAC 150 [Concomitant]

REACTIONS (2)
  - MUSCLE RUPTURE [None]
  - TENDONITIS [None]
